FAERS Safety Report 5168828-0 (Version None)
Quarter: 2006Q4

REPORT INFORMATION
  Report Type: 
  Country: None (occurrence: None)
  Receive Date: 20061205
  Receipt Date: 20061205
  Transmission Date: 20070319
  Serious: Yes (Hospitalization)
  Sender: FDA-Public Use
  Company Number: None

PATIENT
  Age: 77 Year
  Sex: Male
  Weight: 64.4 kg

DRUGS (2)
  1. AMIODARONE HCL [Suspect]
     Indication: ATRIAL FIBRILLATION
     Dosage: 200MG  BID  PO   NEW
     Route: 048
  2. WARFARIN SODIUM [Suspect]
     Indication: ATRIAL FIBRILLATION
     Dosage: 2.5MG  QD  PO  YEARS
     Route: 048

REACTIONS (9)
  - ABDOMINAL DISCOMFORT [None]
  - ASTHENIA [None]
  - CONSTIPATION [None]
  - FALL [None]
  - HAEMATURIA [None]
  - HAEMORRHAGE [None]
  - HEART RATE INCREASED [None]
  - INTERNATIONAL NORMALISED RATIO INCREASED [None]
  - PAIN [None]
